FAERS Safety Report 5743624-1 (Version None)
Quarter: 2008Q2

REPORT INFORMATION
  Report Type: 
  Country: None (occurrence: None)
  Receive Date: 20080519
  Receipt Date: 20080519
  Transmission Date: 20081010
  Serious: Yes (Hospitalization)
  Sender: FDA-Public Use
  Company Number: None

PATIENT
  Age: 63 Year

DRUGS (2)
  1. CITALOPRAM HYDROBROMIDE [Suspect]
     Indication: DEPRESSION
     Dosage: 10 MG EVERY DAY PO
     Route: 048
     Dates: start: 20070628, end: 20071016
  2. WARFARIN SODIUM [Suspect]
     Dosage: 6 MG EVERY DAY PO
     Route: 048
     Dates: start: 20030813, end: 20080516

REACTIONS (3)
  - ANAEMIA [None]
  - EPISTAXIS [None]
  - RHINORRHOEA [None]
